FAERS Safety Report 12683468 (Version 1)
Quarter: 2016Q3

REPORT INFORMATION
  Report Type: Spontaneous
  Country: US (occurrence: None)
  Receive Date: 20160824
  Receipt Date: 20160824
  Transmission Date: 20161109
  Serious: No
  Sender: FDA-Public Use
  Company Number: None

PATIENT
  Age: 42 Year
  Sex: Female

DRUGS (1)
  1. ENBREL [Suspect]
     Active Substance: ETANERCEPT

REACTIONS (4)
  - Nasal congestion [None]
  - Nasopharyngitis [None]
  - Rhinorrhoea [None]
  - Cough [None]

NARRATIVE: CASE EVENT DATE: 20160823
